FAERS Safety Report 9011127 (Version 1)
Quarter: 2013Q1

REPORT INFORMATION
  Report Type: Spontaneous
  Country: US (occurrence: US)
  Receive Date: 20130109
  Receipt Date: 20130109
  Transmission Date: 20140127
  Serious: No
  Sender: FDA-Public Use
  Company Number: US-ABBOTT-12P-163-0980099-00

PATIENT
  Sex: Female
  Weight: 66.28 kg

DRUGS (25)
  1. VICODIN [Suspect]
     Indication: PAIN
  2. LYRICA [Suspect]
     Indication: NEURALGIA
     Dates: start: 2012
  3. NORCO [Suspect]
     Indication: PAIN
  4. NORCO [Suspect]
     Indication: CARPAL TUNNEL SYNDROME
  5. NORCO [Suspect]
     Indication: BACK PAIN
  6. NORCO [Suspect]
     Indication: NECK PAIN
  7. NORCO [Suspect]
     Indication: SPINAL PAIN
  8. XANAX [Suspect]
     Indication: BIPOLAR DISORDER
  9. XANAX [Suspect]
     Indication: PANIC ATTACK
  10. XANAX [Suspect]
     Indication: ANXIETY
  11. XANAX [Suspect]
     Indication: DEPRESSION
  12. LORTAB [Suspect]
     Indication: PAIN
  13. CYMBALTA [Suspect]
     Indication: BIPOLAR DISORDER
     Dosage: 60MG DAILY AT NIGHT
     Dates: start: 2012
  14. CYMBALTA [Suspect]
     Indication: FIBROMYALGIA
  15. CYMBALTA [Suspect]
     Indication: DEPRESSION
  16. CYMBALTA [Suspect]
     Indication: PANIC ATTACK
  17. CYMBALTA [Suspect]
     Indication: ANXIETY
  18. VISTARIL [Suspect]
     Indication: PRODUCT USED FOR UNKNOWN INDICATION
  19. SEROQUEL [Suspect]
     Indication: PRODUCT USED FOR UNKNOWN INDICATION
     Dosage: 500MG DAILY
  20. SEROQUEL [Suspect]
     Dosage: 300MG DAILY
  21. AMBIEN [Concomitant]
     Indication: PRODUCT USED FOR UNKNOWN INDICATION
  22. CLONIDINE [Concomitant]
     Indication: PRODUCT USED FOR UNKNOWN INDICATION
     Dosage: 0.1MG DAILY
  23. CYMBALTA [Concomitant]
     Indication: PRODUCT USED FOR UNKNOWN INDICATION
     Dosage: 60MG DAILY
  24. ZANAFLEX [Concomitant]
     Indication: PRODUCT USED FOR UNKNOWN INDICATION
  25. RITALIN [Concomitant]
     Indication: PRODUCT USED FOR UNKNOWN INDICATION

REACTIONS (15)
  - Pain in extremity [Unknown]
  - Drug ineffective [Unknown]
  - Spinal osteoarthritis [Unknown]
  - Agoraphobia [Unknown]
  - Aphasia [Unknown]
  - Disturbance in attention [Unknown]
  - Hallucination [Unknown]
  - Back pain [Unknown]
  - Hypoaesthesia [Unknown]
  - Gait disturbance [Unknown]
  - Sensory loss [Unknown]
  - Drug ineffective [Unknown]
  - Bipolar disorder [Unknown]
  - Feeling abnormal [Unknown]
  - Arthralgia [Unknown]
